FAERS Safety Report 23278716 (Version 1)
Quarter: 2023Q4

REPORT INFORMATION
  Report Type: Report from Study
  Country: CH (occurrence: CH)
  Receive Date: 20231208
  Receipt Date: 20231208
  Transmission Date: 20240110
  Serious: Yes (Hospitalization, Other)
  Sender: FDA-Public Use
  Company Number: None

PATIENT
  Sex: Female

DRUGS (10)
  1. NEURONTIN [Suspect]
     Active Substance: GABAPENTIN
     Indication: Product used for unknown indication
     Dosage: 700 MILLIGRAM (MAXIMUM DOSE)
     Route: 048
     Dates: start: 20230430
  2. SERTRALINE [Suspect]
     Active Substance: SERTRALINE HYDROCHLORIDE
     Indication: Product used for unknown indication
     Dosage: 100 MILLIGRAM (MAXIMUM DOSE)
     Route: 048
     Dates: start: 20230430
  3. ATORVASTATIN [Suspect]
     Active Substance: ATORVASTATIN
     Indication: Product used for unknown indication
     Dosage: 400 MILLIGRAM (MAXIMUM DOSE)
     Route: 048
     Dates: start: 20230430
  4. QUETIAPINE FUMARATE [Suspect]
     Active Substance: QUETIAPINE FUMARATE
     Indication: Product used for unknown indication
     Dosage: 1000 MILLIGRAM (MAXIMUM DOSE)
     Route: 048
     Dates: start: 20230430
  5. OXYCODONE HYDROCHLORIDE [Suspect]
     Active Substance: OXYCODONE HYDROCHLORIDE
     Indication: Product used for unknown indication
     Dosage: 15 MILLIGRAM (MAXIMUM DOSE)
     Route: 048
     Dates: start: 20230430
  6. BROMAZEPAM [Suspect]
     Active Substance: BROMAZEPAM
     Indication: Product used for unknown indication
     Dosage: 24 MILLIGRAM (MAXIMUM DOSE)
     Route: 048
     Dates: start: 20230430
  7. TIZANIDINE [Suspect]
     Active Substance: TIZANIDINE
     Indication: Product used for unknown indication
     Dosage: 36 MILLIGRAM (MAXIMUM DOSE)
     Route: 017
     Dates: start: 20230430
  8. DAFALGAN [Suspect]
     Active Substance: ACETAMINOPHEN
     Indication: Product used for unknown indication
     Dosage: 2000 MILLIGRAM (MAXIMUM DOSE)
     Route: 048
     Dates: start: 20230430
  9. OXYCODONE [Suspect]
     Active Substance: OXYCODONE
     Indication: Product used for unknown indication
     Dosage: 50 MILLIGRAM (MAXIMUM DOSE)
     Route: 048
     Dates: start: 20230430
  10. TRAZODONE HYDROCHLORIDE [Suspect]
     Active Substance: TRAZODONE HYDROCHLORIDE
     Indication: Product used for unknown indication
     Dosage: 1650 MILLIGRAM (MAXIMUM DOSE)
     Route: 048
     Dates: start: 20230430

REACTIONS (2)
  - Suicide attempt [Recovering/Resolving]
  - Intentional overdose [Recovering/Resolving]

NARRATIVE: CASE EVENT DATE: 20230430
